FAERS Safety Report 5581857-8 (Version None)
Quarter: 2008Q1

REPORT INFORMATION
  Report Type: 
  Country: None (occurrence: None)
  Receive Date: 20080104
  Receipt Date: 20080102
  Transmission Date: 20080703
  Serious: Yes (Other)
  Sender: FDA-Public Use
  Company Number: NL-AVENTIS-200721605GDDC

PATIENT
  Age: 51 Year
  Sex: Female

DRUGS (7)
  1. LANTUS [Suspect]
     Route: 058
     Dates: start: 20070418
  2. METOFORMIN [Concomitant]
     Indication: DIABETES MELLITUS
     Route: 048
  3. METOFORMIN [Concomitant]
     Route: 048
  4. ENALAPRIL [Concomitant]
     Indication: HYPERTENSION
     Route: 048
  5. ZOLPIDEM [Concomitant]
     Route: 048
  6. SIMVASTATIN [Concomitant]
     Route: 048
  7. PANTOZOL                           /01263202/ [Concomitant]
     Route: 048

REACTIONS (1)
  - VISUAL ACUITY REDUCED [None]
